FAERS Safety Report 9629987 (Version 1)
Quarter: 2013Q4

REPORT INFORMATION
  Report Type: Spontaneous
  Country: US (occurrence: US)
  Receive Date: 20131017
  Receipt Date: 20131017
  Transmission Date: 20140711
  Serious: Yes (Other)
  Sender: FDA-Public Use
  Company Number: US-WATSON-2013-17941

PATIENT
  Age: 38 Year
  Sex: Female
  Weight: 57 kg

DRUGS (1)
  1. NICOTINE POLACRILEX [Suspect]
     Indication: SMOKING CESSATION THERAPY
     Dosage: 4MG, CHEW ONE PIECE OF GUM, UNK
     Route: 048
     Dates: start: 20130925, end: 20130925

REACTIONS (2)
  - Convulsion [Recovered/Resolved]
  - Asthenia [Not Recovered/Not Resolved]
